APPROVED DRUG PRODUCT: PROPAFENONE HYDROCHLORIDE
Active Ingredient: PROPAFENONE HYDROCHLORIDE
Strength: 300MG
Dosage Form/Route: TABLET;ORAL
Application: A076550 | Product #003 | TE Code: AB
Applicant: ANI PHARMACEUTICALS INC
Approved: Apr 23, 2004 | RLD: No | RS: No | Type: RX